FAERS Safety Report 25124233 (Version 1)
Quarter: 2025Q1

REPORT INFORMATION
  Report Type: Spontaneous
  Country: IT (occurrence: IT)
  Receive Date: 20250326
  Receipt Date: 20250326
  Transmission Date: 20250408
  Serious: Yes (Other)
  Sender: MERCK SHARP & DOHME LLC
  Company Number: None

PATIENT
  Age: 59 Year
  Sex: Female
  Weight: 58 kg

DRUGS (4)
  1. SEGLUROMET [Suspect]
     Active Substance: ERTUGLIFLOZIN PIDOLATE\METFORMIN HYDROCHLORIDE
     Indication: Type 2 diabetes mellitus
     Dosage: SEGLUROMET*56CPR 2.5MG+1000MG - 2 CP/DAY (AT BREAKFAST AND DINNER)
     Route: 048
     Dates: start: 20220803, end: 20231221
  2. ATORVASTATIN [Concomitant]
     Active Substance: ATORVASTATIN
     Indication: Dyslipidaemia
     Dosage: TOTALIP*30CPR RIV 10MG - 1 TABLET/DAY (10PM)
     Route: 048
  3. BISOPROLOL FUMARATE\HYDROCHLOROTHIAZIDE [Concomitant]
     Active Substance: BISOPROLOL FUMARATE\HYDROCHLOROTHIAZIDE
     Indication: Hypertension
     Dosage: LODOZ*30CPR RIV 5MG+6.25MG - 1 TABLET/DAY
     Route: 048
  4. ZOFENOPRIL [Concomitant]
     Active Substance: ZOFENOPRIL
     Indication: Hypertension
     Route: 048

REACTIONS (8)
  - Relapsing fever [Recovered/Resolved]
  - Dysuria [Recovered/Resolved]
  - Mood altered [Recovered/Resolved]
  - Urinary tract infection [Recovered/Resolved]
  - Dysphoria [Recovered/Resolved]
  - Vulvovaginitis [Recovered/Resolved]
  - Agitation [Recovered/Resolved]
  - Asthenia [Recovered/Resolved]

NARRATIVE: CASE EVENT DATE: 20230101
